FAERS Safety Report 12732874 (Version 1)
Quarter: 2016Q3

REPORT INFORMATION
  Report Type: Spontaneous
  Country: US (occurrence: US)
  Receive Date: 20160910
  Receipt Date: 20160910
  Transmission Date: 20161109
  Serious: No
  Sender: FDA-Public Use
  Company Number: None

PATIENT
  Age: 13 Year
  Sex: Female
  Weight: 44.1 kg

DRUGS (6)
  1. STATERRA [Concomitant]
  2. IBUPROFEN. [Concomitant]
     Active Substance: IBUPROFEN
  3. MULTI VITAMIN [Concomitant]
     Active Substance: VITAMINS
  4. PROZAC [Suspect]
     Active Substance: FLUOXETINE HYDROCHLORIDE
     Indication: DEPRESSION
     Route: 048
  5. METAMUCIL [Concomitant]
     Active Substance: PLANTAGO SEED
  6. RANATADINE [Concomitant]

REACTIONS (2)
  - Alopecia [None]
  - Therapy change [None]

NARRATIVE: CASE EVENT DATE: 20160903
